FAERS Safety Report 8761869 (Version 2)
Quarter: 2013Q1

REPORT INFORMATION
  Report Type: Spontaneous
  Country: US (occurrence: None)
  Receive Date: 20120822
  Receipt Date: 20130129
  Transmission Date: 20140127
  Serious: Yes (Hospitalization, Disabling)
  Sender: FDA-Public Use
  Company Number: ZYD-12-AE-185

PATIENT
  Age: 80 Year
  Sex: Male

DRUGS (2)
  1. RISPERIDONE [Suspect]
     Indication: AGITATION
     Route: 048
     Dates: end: 20120713
  2. ARICEPT [Concomitant]

REACTIONS (4)
  - Abasia [None]
  - Movement disorder [None]
  - Product quality issue [None]
  - Product formulation issue [None]
